FAERS Safety Report 4631466-X (Version None)
Quarter: 2005Q2

REPORT INFORMATION
  Report Type: 
  Country: None (occurrence: None)
  Receive Date: 20050407
  Receipt Date: 20050330
  Transmission Date: 20051028
  Serious: Yes (Other)
  Sender: FDA-Public Use
  Company Number: HQWYE652004APR05

PATIENT
  Age: 24 Year

DRUGS (1)
  1. EFFEXOR [Suspect]
     Dosage: ^4.0^ ORAL
     Route: 048

REACTIONS (4)
  - AGGRESSION [None]
  - AGITATION [None]
  - HOMICIDAL IDEATION [None]
  - PHYSICAL ASSAULT [None]
